FAERS Safety Report 7239489-1 (Version None)
Quarter: 2011Q1

REPORT INFORMATION
  Report Type: 
  Country: None (occurrence: None)
  Receive Date: 20110121
  Receipt Date: 20110114
  Transmission Date: 20110831
  Serious: Yes (Hospitalization)
  Sender: FDA-Public Use
  Company Number: US-RB-020785-11

PATIENT
  Age: 40 Year
  Sex: Male

DRUGS (6)
  1. SYMBICORT [Concomitant]
     Indication: CHRONIC OBSTRUCTIVE PULMONARY DISEASE
     Dosage: DOSING DETAILS UNKNOWN
     Route: 065
  2. FLOVENT [Concomitant]
     Indication: CHRONIC OBSTRUCTIVE PULMONARY DISEASE
     Dosage: DOSING DETAILS UNKNOWN
     Route: 065
  3. SUBOXONE [Suspect]
     Indication: PAIN
     Route: 060
     Dates: start: 20100301
  4. ALBUTEROL INHALER [Concomitant]
     Indication: CHRONIC OBSTRUCTIVE PULMONARY DISEASE
     Dosage: DOSING DETAILS UNKNOWN
     Route: 065
  5. SUBOXONE [Suspect]
     Indication: DRUG DEPENDENCE
     Route: 060
     Dates: start: 20100301
  6. SPIRIVA [Concomitant]
     Indication: CHRONIC OBSTRUCTIVE PULMONARY DISEASE
     Dosage: DOSING DETAILS UNKNOWN
     Route: 065

REACTIONS (5)
  - OXYGEN SATURATION DECREASED [None]
  - BRONCHITIS [None]
  - PULMONARY OEDEMA [None]
  - OEDEMA PERIPHERAL [None]
  - CONDITION AGGRAVATED [None]
